FAERS Safety Report 6025601-9 (Version None)
Quarter: 2008Q4

REPORT INFORMATION
  Report Type: 
  Country: None (occurrence: None)
  Receive Date: 20081231
  Receipt Date: 20081212
  Transmission Date: 20090506
  Serious: No
  Sender: FDA-Public Use
  Company Number: US-B.I. PHARMACEUTICALS,INC./RIDGEFIELD-2008-BP-18718BP

PATIENT
  Sex: Female

DRUGS (7)
  1. SPIRIVA [Suspect]
     Indication: CHRONIC OBSTRUCTIVE PULMONARY DISEASE
     Dosage: 1 CAPSULE EVERY FEW DAYS
     Route: 055
     Dates: start: 20081015, end: 20081214
  2. CLONIDINE [Concomitant]
     Indication: HYPERTENSION
     Dosage: .2MG
  3. CATAPRES-TTS-1 [Concomitant]
     Indication: HYPERTENSION
     Dosage: PATCH # 2
  4. TRIAZIDE DIURETIC [Concomitant]
     Indication: HYPERTENSION
  5. METHADONE [Concomitant]
     Indication: PHANTOM PAIN
     Dosage: 60MG
  6. DARVOCET-N 100 [Concomitant]
     Indication: PHANTOM PAIN
  7. CYMBALTA [Concomitant]
     Indication: PHANTOM PAIN
     Dosage: 120MG

REACTIONS (2)
  - INAPPROPRIATE SCHEDULE OF DRUG ADMINISTRATION [None]
  - MUSCLE SPASMS [None]
